FAERS Safety Report 4596674-5 (Version None)
Quarter: 2005Q1

REPORT INFORMATION
  Report Type: 
  Country: None (occurrence: None)
  Receive Date: 20050302
  Receipt Date: 20050218
  Transmission Date: 20050727
  Serious: Yes (Hospitalization)
  Sender: FDA-Public Use
  Company Number: FR-SANOFI-SYNTHELABO-A02200500414

PATIENT
  Age: 79 Year
  Sex: Female

DRUGS (11)
  1. KARDEGIC [Interacting]
     Indication: DRUG USE FOR UNKNOWN INDICATION
     Route: 048
     Dates: end: 20050116
  2. PLAVIX [Suspect]
     Indication: ACUTE MYOCARDIAL INFARCTION
     Route: 048
     Dates: start: 20030701, end: 20050116
  3. DOLIPRANE [Concomitant]
     Route: 048
  4. ATARAX [Concomitant]
     Dosage: UNK
     Route: 048
  5. PRAVASTATIN [Concomitant]
     Route: 048
  6. NOCTRAN [Concomitant]
     Route: 048
  7. CORVASAL [Concomitant]
     Route: 048
  8. DEPAKOTE [Concomitant]
     Route: 048
  9. ZESTRIL [Concomitant]
     Route: 048
  10. METOPROLOL TARTRATE [Concomitant]
     Route: 048
  11. SEROPRAM [Interacting]
     Indication: DEPRESSION
     Route: 048

REACTIONS (5)
  - ANAEMIA [None]
  - COLITIS ISCHAEMIC [None]
  - DRUG INTERACTION [None]
  - ECCHYMOSIS [None]
  - RECTAL HAEMORRHAGE [None]
